FAERS Safety Report 14691655 (Version 1)
Quarter: 2018Q1

REPORT INFORMATION
  Report Type: Spontaneous
  Country: FR (occurrence: FR)
  Receive Date: 20180329
  Receipt Date: 20180329
  Transmission Date: 20180509
  Serious: Yes (Congenital Anomaly)
  Sender: FDA-Public Use
  Company Number: FR-ABBVIE-18P-056-2252691-00

PATIENT
  Sex: Male

DRUGS (1)
  1. DEPAKINE [Suspect]
     Active Substance: VALPROATE SODIUM
     Indication: MATERNAL EXPOSURE TIMING UNSPECIFIED
     Route: 064

REACTIONS (10)
  - Cardiac disorder [Unknown]
  - Congenital anomaly [Unknown]
  - Single functional kidney [Unknown]
  - Foot deformity [Unknown]
  - Scoliosis [Unknown]
  - Limb malformation [Unknown]
  - Foetal exposure during pregnancy [Unknown]
  - Learning disorder [Unknown]
  - Oesophageal atresia [Unknown]
  - Hypospadias [Unknown]
